FAERS Safety Report 4467994-X (Version None)
Quarter: 2004Q4

REPORT INFORMATION
  Report Type: 
  Country: None (occurrence: None)
  Receive Date: 20041004
  Receipt Date: 20040928
  Transmission Date: 20050328
  Serious: Yes (Hospitalization)
  Sender: FDA-Public Use
  Company Number: MK200409-0219-1

PATIENT
  Age: 37 Year
  Sex: Female

DRUGS (2)
  1. ANAFRANIL CAP [Suspect]
     Dosage: 25MG, QID
     Dates: start: 19980101, end: 20040907
  2. LEXOTAN (BROMAZEPAM) [Suspect]
     Dosage: 5MG, TID
     Dates: start: 19980101, end: 20040907

REACTIONS (4)
  - CAESAREAN SECTION [None]
  - DRUG EXPOSURE DURING PREGNANCY [None]
  - PRE-ECLAMPSIA [None]
  - PREMATURE LABOUR [None]
